FAERS Safety Report 5199857-9 (Version None)
Quarter: 2007Q1

REPORT INFORMATION
  Report Type: 
  Country: None (occurrence: None)
  Receive Date: 20070103
  Receipt Date: 20070103
  Transmission Date: 20070707
  Serious: Yes (Other)
  Sender: FDA-Public Use
  Company Number: None

PATIENT
  Age: 69 Year
  Sex: Female
  Weight: 68.0396 kg

DRUGS (1)
  1. GEMCITABINE [Suspect]
     Indication: NON-HODGKIN'S LYMPHOMA
     Dosage: EVERY 3 WEEK IV BOLUS
     Route: 040
     Dates: start: 20060301, end: 20061210

REACTIONS (6)
  - CHEST PAIN [None]
  - COUGH [None]
  - CREPITATIONS [None]
  - DYSPNOEA EXERTIONAL [None]
  - LYMPHADENOPATHY [None]
  - OXYGEN SATURATION DECREASED [None]
